FAERS Safety Report 18683967 (Version 9)
Quarter: 2021Q3

REPORT INFORMATION
  Report Type: Report from Study
  Country: CO (occurrence: CO)
  Receive Date: 20201230
  Receipt Date: 20210710
  Transmission Date: 20211014
  Serious: Yes (Hospitalization)
  Sender: FDA-Public Use
  Company Number: NVSC2020CO342833

PATIENT
  Sex: Female

DRUGS (2)
  1. KISQALI [Suspect]
     Active Substance: RIBOCICLIB
     Dosage: UNK
     Route: 048
     Dates: start: 202101
  2. KISQALI [Suspect]
     Active Substance: RIBOCICLIB
     Indication: BREAST CANCER METASTATIC
     Dosage: 600 MG, QD
     Route: 048
     Dates: start: 202012

REACTIONS (23)
  - Foaming at mouth [Unknown]
  - Pain [Unknown]
  - Speech disorder [Unknown]
  - Oropharyngeal pain [Unknown]
  - Choking [Unknown]
  - Dysstasia [Unknown]
  - Abdominal pain upper [Unknown]
  - Chest pain [Unknown]
  - Pulmonary pain [Unknown]
  - Spinal pain [Not Recovered/Not Resolved]
  - Infection [Unknown]
  - Asthenia [Unknown]
  - Illness [Unknown]
  - Vomiting [Unknown]
  - Oral mucosal blistering [Unknown]
  - Dehydration [Unknown]
  - Metastases to spine [Not Recovered/Not Resolved]
  - Dyspnoea [Unknown]
  - Headache [Unknown]
  - Ill-defined disorder [Unknown]
  - Diarrhoea [Unknown]
  - Pyrexia [Unknown]
  - COVID-19 [Unknown]
